FAERS Safety Report 7035647-X (Version None)
Quarter: 2010Q4

REPORT INFORMATION
  Report Type: 
  Country: None (occurrence: None)
  Receive Date: 20101007
  Receipt Date: 20101007
  Transmission Date: 20110411
  Serious: Yes (Hospitalization)
  Sender: FDA-Public Use
  Company Number: None

PATIENT
  Age: 82 Year
  Sex: Male
  Weight: 83 kg

DRUGS (2)
  1. OXYCODONE HCL [Suspect]
     Indication: PAIN
     Dosage: 10 MG QID PO
     Route: 048
     Dates: start: 20100708, end: 20100710
  2. HYDROCODONE BITARTRATE AND ACETAMINOPHEN [Suspect]
     Indication: PAIN
     Dosage: 2 TAB TID PO
     Route: 048
     Dates: start: 20081008

REACTIONS (4)
  - ABDOMINAL PAIN [None]
  - JOINT INJURY [None]
  - RENAL FAILURE ACUTE [None]
  - URINARY RETENTION [None]
